FAERS Safety Report 8413408-4 (Version None)
Quarter: 2012Q2

REPORT INFORMATION
  Report Type: 
  Country: None (occurrence: None)
  Receive Date: 20120605
  Receipt Date: 20120530
  Transmission Date: 20120825
  Serious: Yes (Hospitalization, Other)
  Sender: FDA-Public Use
  Company Number: PE-PFIZER INC-2012122461

PATIENT
  Age: 33 Year
  Sex: Male
  Weight: 78 kg

DRUGS (2)
  1. VIAGRA [Suspect]
     Dosage: 50 MG, SINGLE
     Route: 048
     Dates: start: 20030501
  2. VIAGRA [Suspect]
     Dosage: 25 MG, SINGLE
     Route: 048
     Dates: start: 20110101

REACTIONS (4)
  - METAMORPHOPSIA [None]
  - VISUAL FIELD DEFECT [None]
  - MACULAR OEDEMA [None]
  - EYE DISORDER [None]
